FAERS Safety Report 17804681 (Version 1)
Quarter: 2020Q2

REPORT INFORMATION
  Report Type: Report from Study
  Country: BE (occurrence: BE)
  Receive Date: 20200519
  Receipt Date: 20200519
  Transmission Date: 20200714
  Serious: Yes (Death)
  Sender: FDA-Public Use
  Company Number: BE-PFIZER INC-2020195723

PATIENT
  Sex: Female

DRUGS (2)
  1. CARBOPLATIN. [Suspect]
     Active Substance: CARBOPLATIN
     Indication: OVARIAN CANCER
     Dosage: UNK, CYCLIC, (5-6 AUC) 6 CYCLES
  2. APEALEA [Suspect]
     Active Substance: PACLITAXEL
     Indication: OVARIAN CANCER
     Dosage: 250 MG/M2, CYCLIC, (ADMINISTERED AS 1-H INTRAVENOUS INFUSION) 6 CYCLES
     Route: 042

REACTIONS (1)
  - Pancytopenia [Fatal]
